FAERS Safety Report 6789297-0 (Version None)
Quarter: 2010Q2

REPORT INFORMATION
  Report Type: 
  Country: None (occurrence: None)
  Receive Date: 20100623
  Receipt Date: 20090521
  Transmission Date: 20101027
  Serious: Yes (Other)
  Sender: FDA-Public Use
  Company Number: US-PFIZER INC-2008028930

PATIENT
  Sex: Female

DRUGS (8)
  1. PROVERA [Suspect]
     Indication: HORMONE REPLACEMENT THERAPY
     Dosage: 2.5 MG, UNK
     Route: 048
     Dates: start: 19940101, end: 19981101
  2. PROVERA [Suspect]
     Dosage: 5 MG, UNK
     Route: 048
     Dates: start: 19940901, end: 19990101
  3. PROVERA [Suspect]
     Dosage: 10 MG, UNK
     Route: 048
     Dates: start: 19960501, end: 19961001
  4. PREMARIN [Suspect]
     Indication: HORMONE REPLACEMENT THERAPY
     Dosage: 1.25 MG, UNK
     Route: 048
     Dates: start: 19930901, end: 19980101
  5. PREMARIN [Suspect]
     Dosage: 0.625 MG, UNK
     Dates: start: 19950301, end: 19950901
  6. PREMPRO [Suspect]
     Indication: HORMONE REPLACEMENT THERAPY
     Dosage: 0.625/ 2.5MG
     Route: 048
     Dates: start: 19970801, end: 19981101
  7. PREMPRO [Suspect]
     Dosage: 0.625/ 5MG
     Dates: start: 19981101
  8. DOXYCYCLINE [Concomitant]
     Indication: FACE INJURY
     Dosage: UNK
     Dates: start: 19940101

REACTIONS (1)
  - BREAST CANCER [None]
